FAERS Safety Report 23699499 (Version 2)
Quarter: 2024Q2

REPORT INFORMATION
  Report Type: Spontaneous
  Country: BR (occurrence: BR)
  Receive Date: 20240402
  Receipt Date: 20240516
  Transmission Date: 20240716
  Serious: No
  Sender: FDA-Public Use
  Company Number: BR-AMGEN-BRASP2024059746

PATIENT

DRUGS (1)
  1. PEGFILGRASTIM [Suspect]
     Active Substance: PEGFILGRASTIM
     Indication: Product used for unknown indication
     Dosage: UNK (6 MG/0.6 ML)
     Route: 065

REACTIONS (3)
  - Accidental exposure to product [Unknown]
  - Device defective [Unknown]
  - Needle issue [Unknown]

NARRATIVE: CASE EVENT DATE: 20240229
